FAERS Safety Report 4774443-0 (Version None)
Quarter: 2005Q3

REPORT INFORMATION
  Report Type: 
  Country: None (occurrence: None)
  Receive Date: 20050914
  Receipt Date: 20041109
  Transmission Date: 20060218
  Serious: Yes (Disabling)
  Sender: FDA-Public Use
  Company Number: 163-20785-04110237

PATIENT
  Age: 65 Year
  Sex: Male

DRUGS (6)
  1. THALOMID [Suspect]
     Indication: MULTIPLE MYELOMA
     Dosage: 50 MG, DAILY, ORAL
     Route: 048
     Dates: start: 20040518, end: 20040928
  2. PLAVIX [Concomitant]
  3. ZOCOR [Concomitant]
  4. ALTACE [Concomitant]
  5. COREG [Concomitant]
  6. ACETYLSALICYLIC ACID SRT [Concomitant]

REACTIONS (3)
  - ASTHENIA [None]
  - NEUROPATHIC PAIN [None]
  - PERIPHERAL SENSORY NEUROPATHY [None]
